FAERS Safety Report 15475425 (Version 2)
Quarter: 2020Q2

REPORT INFORMATION
  Report Type: Spontaneous
  Country: FR (occurrence: FR)
  Receive Date: 20181008
  Receipt Date: 20200615
  Transmission Date: 20200713
  Serious: Yes (Hospitalization, Other)
  Sender: FDA-Public Use
  Company Number: FR-ALEXION-A201813047

PATIENT
  Sex: Male

DRUGS (5)
  1. STRENSIQ [Suspect]
     Active Substance: ASFOTASE ALFA
     Dosage: 6 MG/KG, UNK
     Route: 058
  2. STRENSIQ [Suspect]
     Active Substance: ASFOTASE ALFA
     Indication: HYPOPHOSPHATASIA
     Dosage: 2 MG/KG, THRICE WEEKLY
     Route: 058
  3. STRENSIQ [Suspect]
     Active Substance: ASFOTASE ALFA
     Dosage: 3 MG/KG, THRICE WEEKLY
     Route: 058
  4. STRENSIQ [Suspect]
     Active Substance: ASFOTASE ALFA
     Dosage: 2 MG/KG, THRICE WEEKLY
     Route: 058
  5. PYRIDOXINE [Concomitant]
     Active Substance: PYRIDOXINE
     Indication: SEIZURE
     Route: 065

REACTIONS (9)
  - Nephrocalcinosis [Unknown]
  - Dysphagia [Recovering/Resolving]
  - Skull malformation [Unknown]
  - Seizure [Recovered/Resolved]
  - Craniosynostosis [Unknown]
  - Pectus carinatum [Unknown]
  - Limb deformity [Unknown]
  - Gastrooesophageal reflux disease [Recovering/Resolving]
  - Failure to thrive [Unknown]
